FAERS Safety Report 8544299-9 (Version None)
Quarter: 2012Q3

REPORT INFORMATION
  Report Type: 
  Country: None (occurrence: None)
  Receive Date: 20120727
  Receipt Date: 20120724
  Transmission Date: 20120928
  Serious: Yes (Life-Threatening)
  Sender: FDA-Public Use
  Company Number: FR-EISAI INC-E7389-02742-CLI-FR

PATIENT

DRUGS (9)
  1. NEXIUM [Concomitant]
     Indication: PROPHYLAXIS
  2. PLITICAN [Concomitant]
     Indication: NAUSEA
     Route: 042
  3. KABIVEN [Concomitant]
     Indication: SUPPLEMENTATION THERAPY
     Dosage: 800KCAL
     Route: 042
  4. INNOHEP [Concomitant]
     Indication: PROPHYLAXIS
     Route: 058
  5. EPIRUBICIN HYDROCHLORIDE [Suspect]
     Indication: BREAST CANCER
     Route: 041
     Dates: start: 20111214, end: 20111221
  6. DECAN [Concomitant]
     Indication: SUPPLEMENTATION THERAPY
     Route: 042
  7. CERNEVIT-12 [Concomitant]
     Indication: SUPPLEMENTATION THERAPY
     Route: 042
  8. PLITICAN [Concomitant]
     Indication: VOMITING
  9. LEVOTHYROXINE SODIUM [Concomitant]
     Indication: HYPOTHYROIDISM
     Route: 048

REACTIONS (2)
  - PNEUMONIA [None]
  - ABDOMINAL PAIN UPPER [None]
